FAERS Safety Report 9275121 (Version 1)
Quarter: 2013Q2

REPORT INFORMATION
  Report Type: Spontaneous
  Country: US (occurrence: None)
  Receive Date: 20130501
  Receipt Date: 20130501
  Transmission Date: 20140414
  Serious: Yes (Other)
  Sender: FDA-Public Use
  Company Number: None

PATIENT
  Age: 61 Year
  Sex: Female
  Weight: 73.48 kg

DRUGS (2)
  1. LIVALO 2MG KOWA/ LILLY [Suspect]
     Indication: BLOOD CHOLESTEROL INCREASED
     Dates: start: 20130301, end: 20130430
  2. WELCHOL [Suspect]

REACTIONS (2)
  - Pruritus [None]
  - Urticaria [None]
